FAERS Safety Report 6624196-6 (Version None)
Quarter: 2010Q1

REPORT INFORMATION
  Report Type: 
  Country: None (occurrence: None)
  Receive Date: 20100310
  Receipt Date: 20091028
  Transmission Date: 20100710
  Serious: No
  Sender: FDA-Public Use
  Company Number: US-BIOGENIDEC-2009BI035055

PATIENT
  Sex: Female

DRUGS (2)
  1. AVONEX [Suspect]
     Indication: MULTIPLE SCLEROSIS
     Route: 030
     Dates: start: 20010212, end: 20030117
  2. AVONEX [Suspect]
     Route: 030
     Dates: start: 20071220

REACTIONS (2)
  - MUSCLE SPASMS [None]
  - ORAL PAIN [None]
